FAERS Safety Report 21704082 (Version 1)
Quarter: 2022Q4

REPORT INFORMATION
  Report Type: Spontaneous
  Country: US (occurrence: US)
  Receive Date: 20221209
  Receipt Date: 20221209
  Transmission Date: 20230113
  Serious: Yes (Other)
  Sender: FDA-Public Use
  Company Number: None

PATIENT
  Age: 55 Year
  Sex: Male

DRUGS (4)
  1. MYCOPHENOLATE MOFETIL [Suspect]
     Active Substance: MYCOPHENOLATE MOFETIL
     Indication: Prophylaxis against graft versus host disease
     Dosage: UNK
     Route: 065
     Dates: start: 2017, end: 2017
  2. ATOVAQUONE [Concomitant]
     Active Substance: ATOVAQUONE
     Indication: Antifungal prophylaxis
     Dosage: 1500 MILLIGRAM, EVERY 1 DAY
     Route: 065
  3. VALACYCLOVIR HYDROCHLORIDE [Concomitant]
     Active Substance: VALACYCLOVIR HYDROCHLORIDE
     Indication: Antiviral prophylaxis
     Dosage: 500 MILLIGRAM, EVERY 1 DAY
     Route: 065
  4. VORICONAZOLE [Concomitant]
     Active Substance: VORICONAZOLE
     Indication: Antifungal prophylaxis
     Dosage: 200 MILLIGRAM, EVERY 12 HOUR
     Route: 065
     Dates: end: 2017

REACTIONS (3)
  - Histoplasmosis [Recovered/Resolved]
  - Respiratory syncytial virus infection [Recovered/Resolved]
  - Parainfluenzae virus infection [Recovered/Resolved]

NARRATIVE: CASE EVENT DATE: 20170101
